FAERS Safety Report 18024783 (Version 1)
Quarter: 2020Q3

REPORT INFORMATION
  Report Type: Spontaneous
  Country: US (occurrence: US)
  Receive Date: 20200715
  Receipt Date: 20200715
  Transmission Date: 20201103
  Serious: No
  Sender: FDA-Public Use
  Company Number: None

PATIENT
  Age: 46 Year
  Sex: Female
  Weight: 49.5 kg

DRUGS (4)
  1. MULTIVITAMIN [Concomitant]
     Active Substance: VITAMINS
  2. FISH OIL [Concomitant]
     Active Substance: FISH OIL
  3. NP THYROID [Suspect]
     Active Substance: LEVOTHYROXINE\LIOTHYRONINE
     Indication: HYPOTHYROIDISM
     Dosage: ?          QUANTITY:1 TABLET(S);?
     Route: 048
     Dates: start: 20200705, end: 20200713
  4. VIT D [Concomitant]
     Active Substance: VITAMIN D NOS

REACTIONS (6)
  - Hyperhidrosis [None]
  - Insomnia [None]
  - Overdose [None]
  - Dizziness [None]
  - Nausea [None]
  - Recalled product administered [None]

NARRATIVE: CASE EVENT DATE: 20200712
